FAERS Safety Report 9160547 (Version 1)
Quarter: 2013Q1

REPORT INFORMATION
  Report Type: Spontaneous
  Country: US (occurrence: US)
  Receive Date: 20130313
  Receipt Date: 20130313
  Transmission Date: 20140127
  Serious: No
  Sender: FDA-Public Use
  Company Number: US-ABBOTT-12P-163-0969373-00

PATIENT
  Age: 54 None
  Sex: Female

DRUGS (4)
  1. DEPAKOTE [Suspect]
     Indication: BIPOLAR DISORDER
     Route: 048
     Dates: end: 2012
  2. DEPAKOTE [Suspect]
     Dates: start: 2012, end: 2012
  3. DEPAKOTE [Suspect]
     Dosage: TAPERED
     Dates: start: 2012, end: 201208
  4. ABILIFY [Concomitant]
     Indication: PRODUCT USED FOR UNKNOWN INDICATION

REACTIONS (3)
  - Drug level increased [Recovered/Resolved]
  - Ammonia increased [Unknown]
  - Mania [Recovered/Resolved]
